FAERS Safety Report 4993211-8 (Version None)
Quarter: 2006Q1

REPORT INFORMATION
  Report Type: 
  Country: None (occurrence: None)
  Receive Date: 20060313
  Receipt Date: 20051228
  Transmission Date: 20060701
  Serious: No
  Sender: FDA-Public Use
  Company Number: 2005-BP-19835BP

PATIENT
  Age: 77 Year
  Sex: Female
  Weight: 53.07 kg

DRUGS (9)
  1. SPIRIVA [Suspect]
     Indication: CHRONIC OBSTRUCTIVE PULMONARY DISEASE
     Dosage: 18 MCG (18 MCG,1 IN 1D),IH
     Dates: start: 20051104, end: 20051108
  2. ALBUTEROL SULFATE AUTOHALER [Concomitant]
  3. SEREVENT [Concomitant]
  4. CAPOTEN [Concomitant]
  5. TAGAMET [Concomitant]
  6. FOLIC ACID [Concomitant]
  7. NORVASC [Concomitant]
  8. ASPIRIN [Concomitant]
  9. CLARITIN [Concomitant]

REACTIONS (7)
  - BRONCHITIS [None]
  - DYSPHONIA [None]
  - EAR DISCOMFORT [None]
  - EPISTAXIS [None]
  - PHARYNGEAL OEDEMA [None]
  - THROAT IRRITATION [None]
  - THROAT TIGHTNESS [None]
